FAERS Safety Report 17912236 (Version 11)
Quarter: 2021Q1

REPORT INFORMATION
  Report Type: Report from Study
  Country: US (occurrence: US)
  Receive Date: 20200618
  Receipt Date: 20210211
  Transmission Date: 20210419
  Serious: Yes (Hospitalization, Other)
  Sender: FDA-Public Use
  Company Number: NVSC2020US169893

PATIENT
  Age: 73 Year
  Sex: Male
  Weight: 68.03 kg

DRUGS (9)
  1. TREPROSTINIL. [Suspect]
     Active Substance: TREPROSTINIL
     Dosage: UNK (50 NG/KG/MIN,CONTINOUS)
     Route: 042
     Dates: start: 20200611
  2. OPSUMIT [Concomitant]
     Active Substance: MACITENTAN
     Indication: PRODUCT USED FOR UNKNOWN INDICATION
     Dosage: UNK
     Route: 065
  3. TREPROSTINIL. [Suspect]
     Active Substance: TREPROSTINIL
     Indication: PULMONARY ARTERIAL HYPERTENSION
     Dosage: 20 NG/KG/MIN, CONTINUOUS
     Route: 042
     Dates: start: 20200611
  4. TREPROSTINIL. [Suspect]
     Active Substance: TREPROSTINIL
     Dosage: 45 NG/KG/MIN,CONTINOUS
     Route: 042
  5. TREPROSTINIL. [Suspect]
     Active Substance: TREPROSTINIL
     Dosage: 50 NG/KG/MIN (CONTINUOUS)
     Route: 042
     Dates: start: 20201106
  6. SILDENAFIL CITRATE. [Concomitant]
     Active Substance: SILDENAFIL CITRATE
     Indication: PRODUCT USED FOR UNKNOWN INDICATION
     Dosage: UNK
     Route: 065
  7. TREPROSTINIL. [Suspect]
     Active Substance: TREPROSTINIL
     Dosage: 32 NG/KG/MIN, CONTINUOUS
     Route: 042
  8. ELIQUIS [Concomitant]
     Active Substance: APIXABAN
     Indication: PRODUCT USED FOR UNKNOWN INDICATION
     Dosage: UNK
     Route: 065
  9. AMLODIPINE [Concomitant]
     Active Substance: AMLODIPINE BESYLATE
     Indication: PRODUCT USED FOR UNKNOWN INDICATION
     Dosage: UNK
     Route: 065

REACTIONS (14)
  - Syncope [Unknown]
  - Catheter site pruritus [Unknown]
  - Catheter site mass [Unknown]
  - Dyspnoea [Unknown]
  - Catheter site erythema [Not Recovered/Not Resolved]
  - Renal impairment [Unknown]
  - Loss of consciousness [Unknown]
  - Scratch [Unknown]
  - Catheter site dermatitis [Unknown]
  - Haemodynamic instability [Unknown]
  - Dermatitis contact [Unknown]
  - Fluid retention [Unknown]
  - Catheter site irritation [Unknown]
  - Diarrhoea [Unknown]

NARRATIVE: CASE EVENT DATE: 20200801
